FAERS Safety Report 5960782-4 (Version None)
Quarter: 2008Q4

REPORT INFORMATION
  Report Type: 
  Country: None (occurrence: None)
  Receive Date: 20081120
  Receipt Date: 20081113
  Transmission Date: 20090506
  Serious: Yes (Hospitalization, Other)
  Sender: FDA-Public Use
  Company Number: JP-PFIZER INC-2008097079

PATIENT
  Age: 70 Year
  Sex: Female

DRUGS (1)
  1. CELECOX [Suspect]
     Route: 048
     Dates: start: 20081103

REACTIONS (2)
  - CHEST PAIN [None]
  - FEELING ABNORMAL [None]
